FAERS Safety Report 12712071 (Version 1)
Quarter: 2016Q3

REPORT INFORMATION
  Report Type: Spontaneous
  Country: US (occurrence: US)
  Receive Date: 20160902
  Receipt Date: 20160902
  Transmission Date: 20161109
  Serious: No
  Sender: FDA-Public Use
  Company Number: ALCN2016US006097

PATIENT
  Sex: Female

DRUGS (1)
  1. GENTEAL MODERATE TO SEVERE GEL DROPS [Suspect]
     Active Substance: CARBOXYMETHYLCELLULOSE SODIUM\HYPROMELLOSES
     Indication: PRODUCT USED FOR UNKNOWN INDICATION
     Dosage: 1 GTT, QD
     Route: 047
     Dates: start: 20160825, end: 20160831

REACTIONS (1)
  - Foreign body in eye [Recovered/Resolved]

NARRATIVE: CASE EVENT DATE: 20160826
